FAERS Safety Report 5167798-9 (Version None)
Quarter: 2006Q4

REPORT INFORMATION
  Report Type: 
  Country: None (occurrence: None)
  Receive Date: 20061208
  Receipt Date: 20050620
  Transmission Date: 20070319
  Serious: Yes (Other)
  Sender: FDA-Public Use
  Company Number: PHEH2005US06924

PATIENT
  Age: 57 Year
  Sex: Female

DRUGS (15)
  1. ZOMETA [Suspect]
     Indication: MULTIPLE MYELOMA
     Dosage: 4 MG, MONTHLY (ONCE A MONTH)
     Dates: start: 20010101, end: 20060601
  2. ZOLOFT [Concomitant]
  3. RITALIN [Concomitant]
  4. OXYCODONE HCL [Concomitant]
  5. THALIDOMIDE [Concomitant]
     Dosage: 100 MG, UNK
     Dates: start: 20041029
  6. THALIDOMIDE [Concomitant]
     Dates: end: 20041028
  7. KLONOPIN [Concomitant]
  8. BIAXIN [Concomitant]
  9. DEXAMETHASONE [Concomitant]
  10. COMBIVENT /GFR/ [Concomitant]
     Indication: ASTHMA
  11. ALBUTEROL [Concomitant]
     Indication: ASTHMA
  12. FLOVENT [Concomitant]
  13. EFFEXOR [Concomitant]
  14. COLACE [Concomitant]
  15. ZANTAC [Concomitant]

REACTIONS (9)
  - ENDODONTIC PROCEDURE [None]
  - ERYTHEMA [None]
  - FISTULA [None]
  - ORAL SOFT TISSUE DISORDER [None]
  - OSTEOMYELITIS [None]
  - OSTEONECROSIS [None]
  - PAIN [None]
  - SWELLING [None]
  - TOOTH EXTRACTION [None]
